FAERS Safety Report 7114241-6 (Version None)
Quarter: 2010Q4

REPORT INFORMATION
  Report Type: 
  Country: None (occurrence: None)
  Receive Date: 20101119
  Receipt Date: 20101110
  Transmission Date: 20110411
  Serious: Yes (Death, Hospitalization)
  Sender: FDA-Public Use
  Company Number: AU-ROCHE-438414

PATIENT
  Sex: Female
  Weight: 55.5 kg

DRUGS (12)
  1. XELODA [Suspect]
     Indication: BREAST CANCER METASTATIC
     Route: 048
     Dates: start: 20050708, end: 20050717
  2. HERCEPTIN [Suspect]
     Indication: BREAST CANCER METASTATIC
     Dosage: LOADING DOSE
     Route: 042
     Dates: start: 20050708, end: 20050708
  3. HERCEPTIN [Suspect]
     Route: 042
     Dates: start: 20050715, end: 20050715
  4. NAVELBINE [Suspect]
     Indication: BREAST CANCER METASTATIC
     Dosage: CYCLE 1, EVERY 3 WEEKS
     Route: 048
     Dates: start: 20050708, end: 20050715
  5. LASIX [Concomitant]
     Indication: DIURETIC THERAPY
     Route: 048
  6. FOLIC ACID [Concomitant]
     Indication: VITAMIN SUPPLEMENTATION
     Route: 048
  7. ALDACTONE [Concomitant]
     Route: 048
  8. NEXIUM [Concomitant]
  9. PARACETAMOL [Concomitant]
     Indication: PAIN
     Route: 048
  10. MULTI-VITAMIN [Concomitant]
     Indication: VITAMIN SUPPLEMENTATION
     Route: 048
  11. BETALOC [Concomitant]
     Route: 048
  12. GLUCOSAMINE [Concomitant]

REACTIONS (3)
  - CARDIAC ARREST [None]
  - DIARRHOEA [None]
  - PULMONARY OEDEMA [None]
